FAERS Safety Report 19102864 (Version 1)
Quarter: 2021Q2

REPORT INFORMATION
  Report Type: Spontaneous
  Country: US (occurrence: US)
  Receive Date: 20210407
  Receipt Date: 20210407
  Transmission Date: 20210717
  Serious: Yes (Disabling)
  Sender: FDA-Public Use
  Company Number: None

PATIENT
  Age: 11 Year
  Sex: Male
  Weight: 62.1 kg

DRUGS (1)
  1. GUANFACINE HCL ER 2MG TABLET [Suspect]
     Active Substance: GUANFACINE HYDROCHLORIDE
     Indication: ATTENTION DEFICIT HYPERACTIVITY DISORDER
     Dosage: ?          QUANTITY:1 TABLET(S);?
     Route: 048
     Dates: start: 20210119, end: 20210405

REACTIONS (5)
  - Dyspepsia [None]
  - Insomnia [None]
  - Somnolence [None]
  - Rash [None]
  - Feeling abnormal [None]

NARRATIVE: CASE EVENT DATE: 20210125
